FAERS Safety Report 21769863 (Version 1)
Quarter: 2022Q4

REPORT INFORMATION
  Report Type: Spontaneous
  Country: FR (occurrence: FR)
  Receive Date: 20221223
  Receipt Date: 20221223
  Transmission Date: 20230113
  Serious: Yes (Death)
  Sender: FDA-Public Use
  Company Number: FR-BAXTER-2022BAX026257

PATIENT
  Age: 85 Year
  Sex: Female

DRUGS (3)
  1. BORTEZOMIB [Suspect]
     Active Substance: BORTEZOMIB
     Indication: Product used for unknown indication
     Dosage: 1.3 MG/M2 /WEEK
     Route: 065
  2. CYCLOPHOSPHAMIDE [Suspect]
     Active Substance: CYCLOPHOSPHAMIDE
     Indication: Product used for unknown indication
     Dosage: 1000 MG/M2, EVERY WEEK
     Route: 065
  3. DEXAMETHASONE [Suspect]
     Active Substance: DEXAMETHASONE
     Indication: Product used for unknown indication
     Dosage: 20 MILLIGRAM, /WEEK
     Route: 065

REACTIONS (1)
  - Disease progression [Fatal]
